FAERS Safety Report 19963308 (Version 1)
Quarter: 2021Q4

REPORT INFORMATION
  Report Type: Spontaneous
  Country: FR (occurrence: FR)
  Receive Date: 20211018
  Receipt Date: 20211018
  Transmission Date: 20220303
  Serious: Yes (Congenital Anomaly, Other)
  Sender: FDA-Public Use
  Company Number: FR-ABBVIE-21K-056-4117771-00

PATIENT
  Sex: Male

DRUGS (2)
  1. VALPROATE SODIUM [Suspect]
     Active Substance: VALPROATE SODIUM
     Indication: Maternal exposure timing unspecified
     Route: 064
  2. FOLIC ACID [Concomitant]
     Active Substance: FOLIC ACID
     Indication: Maternal exposure timing unspecified
     Route: 064

REACTIONS (11)
  - Cryptorchism [Unknown]
  - Hydrocele [Unknown]
  - Dysmorphism [Unknown]
  - Congenital hand malformation [Unknown]
  - Appendicitis [Unknown]
  - Learning disorder [Unknown]
  - Ear infection [Unknown]
  - Asthma [Unknown]
  - Myopia [Unknown]
  - Astigmatism [Unknown]
  - Foetal exposure during pregnancy [Unknown]

NARRATIVE: CASE EVENT DATE: 20060201
